FAERS Safety Report 9105437 (Version 1)
Quarter: 2013Q1

REPORT INFORMATION
  Report Type: Spontaneous
  Country: FI (occurrence: FI)
  Receive Date: 20130220
  Receipt Date: 20130220
  Transmission Date: 20140127
  Serious: Yes (Death)
  Sender: FDA-Public Use
  Company Number: FI-BAYER-2013-018790

PATIENT
  Sex: 0

DRUGS (2)
  1. NEXAVAR [Suspect]
  2. ALCOHOL [Suspect]

REACTIONS (1)
  - Death [Fatal]
